FAERS Safety Report 5232544-7 (Version None)
Quarter: 2007Q1

REPORT INFORMATION
  Report Type: 
  Country: None (occurrence: None)
  Receive Date: 20070207
  Receipt Date: 20070129
  Transmission Date: 20070707
  Serious: Yes (Life-Threatening, Hospitalization)
  Sender: FDA-Public Use
  Company Number: FR-GLAXOSMITHKLINE-B0449014A

PATIENT
  Age: 70 Year
  Sex: Female
  Weight: 98 kg

DRUGS (1)
  1. ARIXTRA [Suspect]
     Indication: PHLEBITIS
     Dosage: 7.5MG PER DAY
     Route: 058
     Dates: start: 20061010, end: 20061015

REACTIONS (5)
  - ABDOMINAL PAIN [None]
  - DYSPNOEA [None]
  - HAEMATOMA [None]
  - MALAISE [None]
  - TACHYCARDIA [None]
